FAERS Safety Report 18464382 (Version 1)
Quarter: 2020Q4

REPORT INFORMATION
  Report Type: Spontaneous
  Country: ES (occurrence: ES)
  Receive Date: 20201104
  Receipt Date: 20201104
  Transmission Date: 20210114
  Serious: Yes (Other)
  Sender: FDA-Public Use
  Company Number: ES-SA-2020SA306773

PATIENT

DRUGS (1)
  1. APIDRA [Suspect]
     Active Substance: INSULIN GLULISINE
     Indication: TYPE 1 DIABETES MELLITUS
     Dosage: DOSE DEPENDING ON GLYCAEMIAS
     Route: 058
     Dates: start: 2018

REACTIONS (11)
  - Weight decreased [Unknown]
  - Clavicle fracture [Unknown]
  - Foot fracture [Unknown]
  - Body height decreased [Unknown]
  - Incorrect dose administered [Unknown]
  - Multiple fractures [Unknown]
  - Osteoarthritis [Unknown]
  - Treatment noncompliance [Unknown]
  - Blood glucose abnormal [Unknown]
  - Pain [Unknown]
  - Multiple use of single-use product [Unknown]

NARRATIVE: CASE EVENT DATE: 202010
